FAERS Safety Report 7746439-8 (Version None)
Quarter: 2011Q3

REPORT INFORMATION
  Report Type: 
  Country: None (occurrence: None)
  Receive Date: 20110913
  Receipt Date: 20110906
  Transmission Date: 20111222
  Serious: Yes (Death, Hospitalization)
  Sender: FDA-Public Use
  Company Number: CA-SANOFI-AVENTIS-2011SA054969

PATIENT
  Age: 50 Year
  Sex: Female
  Weight: 64.6 kg

DRUGS (21)
  1. SYNTHROID [Concomitant]
     Indication: HYPOTHYROIDISM
     Dates: end: 20110814
  2. PHENOBARBITAL TAB [Concomitant]
     Dates: end: 20110821
  3. NAPROSYN [Concomitant]
     Dates: end: 20110814
  4. DOCETAXEL [Suspect]
     Route: 041
     Dates: start: 20110627, end: 20110627
  5. COLACE [Concomitant]
     Indication: CONSTIPATION
     Dates: end: 20110814
  6. MODAFINIL [Concomitant]
     Dates: end: 20110814
  7. FOLIC ACID [Concomitant]
     Dates: end: 20110814
  8. ANCEF [Concomitant]
     Indication: SEPSIS
     Dates: end: 20110808
  9. LASIX [Concomitant]
     Dates: end: 20110810
  10. VITAMIN D [Concomitant]
     Dates: end: 20110814
  11. SODIUM CHLORIDE [Concomitant]
     Dates: end: 20110814
  12. BLINDED THERAPY [Suspect]
     Route: 042
     Dates: start: 20110808, end: 20110808
  13. BLINDED THERAPY [Suspect]
     Route: 042
     Dates: start: 20110627, end: 20110627
  14. SENOKOT /UNK/ [Concomitant]
     Indication: CONSTIPATION
     Dates: end: 20110814
  15. CALCIUM CARBONATE [Concomitant]
     Dates: end: 20110814
  16. DILAUDID [Concomitant]
     Indication: PAIN
     Dates: end: 20110821
  17. LEVOFLOXACIN [Concomitant]
     Dates: end: 20110819
  18. DOCETAXEL [Suspect]
     Route: 041
     Dates: start: 20110808, end: 20110808
  19. DILANTIN [Concomitant]
     Dates: end: 20110818
  20. DIVALPROEX SODIUM [Concomitant]
     Dates: end: 20110819
  21. DEXAMETHASONE [Concomitant]
     Dates: start: 20110807, end: 20110809

REACTIONS (2)
  - DISEASE PROGRESSION [None]
  - HYPERCALCAEMIA [None]
